FAERS Safety Report 18532858 (Version 2)
Quarter: 2020Q4

REPORT INFORMATION
  Report Type: Report from Study
  Country: DE (occurrence: DE)
  Receive Date: 20201123
  Receipt Date: 20201127
  Transmission Date: 20210114
  Serious: Yes (Other)
  Sender: FDA-Public Use
  Company Number: NVSC2020DE306607

PATIENT
  Sex: Female
  Weight: 48 kg

DRUGS (2)
  1. MAYZENT [Suspect]
     Active Substance: SIPONIMOD
     Indication: SECONDARY PROGRESSIVE MULTIPLE SCLEROSIS
     Dosage: UNK (TITRATION PHASE)
     Route: 048
  2. MAYZENT [Suspect]
     Active Substance: SIPONIMOD
     Dosage: 2 MG, QD (MAINTENANCE DOSAGE)
     Route: 048
     Dates: start: 20201013

REACTIONS (6)
  - Circulatory collapse [Recovered/Resolved with Sequelae]
  - Nasopharyngitis [Recovered/Resolved]
  - Skin abrasion [Unknown]
  - Back pain [Unknown]
  - Fall [Recovered/Resolved with Sequelae]
  - Oropharyngeal pain [Recovered/Resolved]

NARRATIVE: CASE EVENT DATE: 202010
